FAERS Safety Report 20000212 (Version 1)
Quarter: 2021Q4

REPORT INFORMATION
  Report Type: Spontaneous
  Country: FR (occurrence: FR)
  Receive Date: 20211026
  Receipt Date: 20211026
  Transmission Date: 20220303
  Serious: Yes (Other)
  Sender: FDA-Public Use
  Company Number: None

PATIENT
  Age: 68 Year
  Sex: Female

DRUGS (4)
  1. ICLUSIG [Suspect]
     Active Substance: PONATINIB
     Indication: Philadelphia positive acute lymphocytic leukaemia
     Dosage: UNK, QD
     Route: 048
     Dates: start: 20200416, end: 20210429
  2. RUXOLITINIB [Suspect]
     Active Substance: RUXOLITINIB
     Indication: Philadelphia positive acute lymphocytic leukaemia
     Dosage: UNK UNK, QD
     Route: 048
     Dates: start: 20200109, end: 20210205
  3. GLIVEC [Suspect]
     Active Substance: IMATINIB MESYLATE
     Indication: Philadelphia positive acute lymphocytic leukaemia
     Dosage: 100 MILLIGRAM, QD
     Route: 048
     Dates: start: 20200820, end: 20210929
  4. SPRYCEL [Suspect]
     Active Substance: DASATINIB
     Indication: Philadelphia positive acute lymphocytic leukaemia
     Dosage: UNK UNK, QD
     Route: 048
     Dates: start: 20200225, end: 20210416

REACTIONS (1)
  - Microangiopathy [Recovered/Resolved with Sequelae]

NARRATIVE: CASE EVENT DATE: 20211008
